FAERS Safety Report 5021261-4 (Version None)
Quarter: 2006Q2

REPORT INFORMATION
  Report Type: 
  Country: None (occurrence: None)
  Receive Date: 20060608
  Receipt Date: 20051021
  Transmission Date: 20061013
  Serious: Yes (Hospitalization, Other)
  Sender: FDA-Public Use
  Company Number: JP-SANOFI-SYNTHELABO-F01200502224

PATIENT
  Sex: Male
  Weight: 82 kg

DRUGS (23)
  1. ACEON [Concomitant]
  2. METAGLIP [Concomitant]
  3. ADVAIR DISKUS 100/50 [Concomitant]
  4. TYLENOL (CAPLET) [Concomitant]
     Indication: PAIN
  5. INSULIN [Concomitant]
     Indication: DIABETES MELLITUS
  6. VYTORIN [Concomitant]
  7. SENOKOT [Concomitant]
  8. MOTRIN [Concomitant]
     Indication: ARTHRITIS
     Dosage: UNK
     Dates: start: 20000101
  9. ZOCOR [Concomitant]
  10. RESTORIL [Concomitant]
  11. K-DUR 10 [Concomitant]
     Indication: BALANCE DISORDER
     Dosage: UNK
     Dates: start: 20050703
  12. PROTONIX [Concomitant]
  13. METFORMIN [Concomitant]
  14. LISINOPRIL [Concomitant]
  15. GLIPIZIDE [Concomitant]
     Indication: DIABETES MELLITUS
     Dosage: UNK
     Route: 065
     Dates: start: 19970101
  16. LASIX [Concomitant]
     Indication: CARDIAC FAILURE CONGESTIVE
     Dosage: UNK
     Route: 065
     Dates: start: 20050702
  17. FLOVENT [Concomitant]
  18. ZETIA [Concomitant]
     Indication: BLOOD CHOLESTEROL INCREASED
     Dosage: UNK
     Route: 065
     Dates: start: 20050703
  19. ATENOLOL [Concomitant]
     Indication: ANGINA PECTORIS
     Dosage: 50 MG
     Route: 065
     Dates: start: 19870101
  20. ASPIRIN BABY [Concomitant]
     Indication: ANTIPLATELET THERAPY
     Dosage: UNK
     Route: 065
     Dates: start: 20050702
  21. ACTOS [Concomitant]
     Indication: DIABETES MELLITUS
     Dosage: UNK
     Route: 065
     Dates: start: 19990101
  22. IMDUR [Concomitant]
     Indication: ANGINA PECTORIS
     Dosage: UNK
     Route: 065
     Dates: start: 20050707
  23. CLOPIDOGREL [Suspect]
     Indication: ACUTE CORONARY SYNDROME
     Dosage: UNK
     Route: 048
     Dates: start: 20050715, end: 20050924

REACTIONS (20)
  - CARDIAC FAILURE CONGESTIVE [None]
  - CEREBROVASCULAR ACCIDENT [None]
  - DIABETES MELLITUS INADEQUATE CONTROL [None]
  - ELECTROCARDIOGRAM POOR R-WAVE PROGRESSION [None]
  - ENCEPHALOPATHY [None]
  - GASTRITIS [None]
  - HYPONATRAEMIA [None]
  - ILIAC ARTERY STENOSIS [None]
  - INTESTINAL ISCHAEMIA [None]
  - MALIGNANT HYPERTENSION [None]
  - PULSE ABSENT [None]
  - RENAL ARTERY STENOSIS [None]
  - RESPIRATORY FAILURE [None]
  - STREPTOCOCCAL INFECTION [None]
  - SUPRAVENTRICULAR EXTRASYSTOLES [None]
  - URINARY TRACT INFECTION BACTERIAL [None]
  - UROSEPSIS [None]
  - VASCULAR PSEUDOANEURYSM [None]
  - VENTRICULAR EXTRASYSTOLES [None]
  - WEIGHT DECREASED [None]
